FAERS Safety Report 13821061 (Version 1)
Quarter: 2017Q3

REPORT INFORMATION
  Report Type: Spontaneous
  Country: GB (occurrence: GB)
  Receive Date: 20170801
  Receipt Date: 20170801
  Transmission Date: 20171127
  Serious: Yes (Other)
  Sender: FDA-Public Use
  Company Number: GB-AUROBINDO-AUR-APL-2017-37780

PATIENT
  Age: 59 Year
  Sex: Male

DRUGS (3)
  1. BISOPROLOL [Suspect]
     Active Substance: BISOPROLOL
     Indication: WOLFF-PARKINSON-WHITE SYNDROME CONGENITAL
     Dosage: 2.5 MG, ONCE A DAY
     Route: 048
     Dates: start: 20170707, end: 20170710
  2. IBUPROFEN. [Concomitant]
     Active Substance: IBUPROFEN
     Indication: PRODUCT USED FOR UNKNOWN INDICATION
     Route: 065
  3. LOPERAMIDE [Concomitant]
     Active Substance: LOPERAMIDE
     Indication: PRODUCT USED FOR UNKNOWN INDICATION
     Route: 065

REACTIONS (3)
  - Nightmare [Unknown]
  - Abnormal dreams [Unknown]
  - Product substitution issue [Unknown]

NARRATIVE: CASE EVENT DATE: 20170707
